FAERS Safety Report 7971934-6 (Version None)
Quarter: 2011Q4

REPORT INFORMATION
  Report Type: 
  Country: None (occurrence: None)
  Receive Date: 20111212
  Receipt Date: 20111206
  Transmission Date: 20120403
  Serious: Yes (Hospitalization)
  Sender: FDA-Public Use
  Company Number: PHHY2011JP89625

PATIENT
  Age: 80 Year
  Sex: Male

DRUGS (4)
  1. PERINDOPRIL ERBUMINE [Suspect]
     Dosage: 4 MG, DAILY
     Route: 048
     Dates: start: 20110308, end: 20110803
  2. TRICHLORMETHIAZIDE [Suspect]
     Dosage: 2 MG, DAILY
     Route: 048
     Dates: end: 20110801
  3. EXFORGE [Suspect]
     Indication: HYPERTENSION
     Dosage: 1 DF, DAILY
     Route: 048
     Dates: start: 20110308, end: 20110829
  4. ADALAT [Suspect]
     Dosage: 20 MG, DAILY
     Route: 048
     Dates: end: 20110811

REACTIONS (7)
  - ANAPHYLACTIC REACTION [None]
  - BLOOD IMMUNOGLOBULIN E INCREASED [None]
  - HYPOTENSION [None]
  - EOSINOPHIL COUNT INCREASED [None]
  - MALAISE [None]
  - URTICARIA [None]
  - DECREASED APPETITE [None]
